FAERS Safety Report 8199442-0 (Version None)
Quarter: 2012Q1

REPORT INFORMATION
  Report Type: 
  Country: None (occurrence: None)
  Receive Date: 20120309
  Receipt Date: 20120229
  Transmission Date: 20120608
  Serious: Yes (Other)
  Sender: FDA-Public Use
  Company Number: ES-GILEAD-2012-0051237

PATIENT
  Sex: Male

DRUGS (6)
  1. DARUNAVIR HYDRATE [Concomitant]
     Indication: HIV INFECTION
     Dosage: 800 MG, UNK
     Route: 048
     Dates: start: 20120130
  2. TRUVADA [Suspect]
     Dosage: UNK
     Dates: start: 20120203
  3. TRUVADA [Suspect]
     Indication: HIV INFECTION
     Dosage: 1 DF, UNK
     Route: 048
     Dates: start: 20120130, end: 20120131
  4. DARUNAVIR HYDRATE [Concomitant]
     Dosage: UNK
     Dates: start: 20120202
  5. RITONAVIR [Concomitant]
     Indication: HIV INFECTION
     Dosage: 100 MG, UNK
     Route: 048
     Dates: start: 20120130
  6. RITONAVIR [Concomitant]
     Dosage: UNK
     Dates: start: 20120201

REACTIONS (2)
  - DYSAESTHESIA [None]
  - PERINEAL PAIN [None]
